FAERS Safety Report 9401913 (Version 1)
Quarter: 2013Q3

REPORT INFORMATION
  Report Type: Spontaneous
  Country: US (occurrence: US)
  Receive Date: 20130716
  Receipt Date: 20130716
  Transmission Date: 20140515
  Serious: No
  Sender: FDA-Public Use
  Company Number: US-PFIZER INC-2013206487

PATIENT
  Age: 56 Year
  Sex: Female
  Weight: 56.69 kg

DRUGS (3)
  1. CELEBREX [Suspect]
     Dosage: UNK
  2. HUMIRA [Concomitant]
     Indication: CROHN^S DISEASE
     Dosage: 40 MG, 1X/DAY
  3. ASACOL [Concomitant]
     Dosage: 800 MG, 1X/DAY

REACTIONS (2)
  - Drug dispensing error [Unknown]
  - Abdominal pain upper [Unknown]
